FAERS Safety Report 26154460 (Version 2)
Quarter: 2025Q4

REPORT INFORMATION
  Report Type: Spontaneous
  Country: JP (occurrence: JP)
  Receive Date: 20251215
  Receipt Date: 20251222
  Transmission Date: 20260118
  Serious: Yes (Other)
  Sender: GLAXOSMITHKLINE
  Company Number: JP-GSKNCCC-Case-02753299_AE-105633

PATIENT
  Age: 86 Year
  Sex: Male

DRUGS (12)
  1. TRELEGY ELLIPTA [Suspect]
     Active Substance: FLUTICASONE FUROATE\UMECLIDINIUM BROMIDE\VILANTEROL TRIFENATATE
     Indication: Asthma
     Dosage: 100 ?G
  2. Canalia [Concomitant]
     Indication: Diabetes mellitus
     Dosage: UNK
  3. MIGLITOL [Concomitant]
     Active Substance: MIGLITOL
     Indication: Diabetes mellitus
     Dosage: UNK
  4. MITIGLINIDE CALCIUM HYDRATE [Concomitant]
     Active Substance: MITIGLINIDE CALCIUM HYDRATE
     Indication: Diabetes mellitus
     Dosage: UNK
  5. METFORMIN HYDROCHLORIDE [Concomitant]
     Active Substance: METFORMIN HYDROCHLORIDE
     Indication: Diabetes mellitus
     Dosage: UNK
  6. RUPAFIN [Concomitant]
     Active Substance: RUPATADINE FUMARATE
     Indication: Diabetes mellitus
     Dosage: UNK
  7. TRAMADOL HYDROCHLORIDE [Concomitant]
     Active Substance: TRAMADOL HYDROCHLORIDE
     Dosage: UNK
  8. DICLOFENAC SODIUM [Concomitant]
     Active Substance: DICLOFENAC SODIUM
     Dosage: UNK
  9. DOMPERIDONE [Concomitant]
     Active Substance: DOMPERIDONE
     Dosage: UNK
  10. ICOSAPENT [Concomitant]
     Active Substance: ICOSAPENT
     Dosage: UNK
  11. ISOSORBIDE DINITRATE [Concomitant]
     Active Substance: ISOSORBIDE DINITRATE
     Dosage: UNK
  12. HERBALS [Concomitant]
     Active Substance: HERBALS
     Dosage: UNK

REACTIONS (3)
  - Diabetes mellitus [Unknown]
  - Benign prostatic hyperplasia [Unknown]
  - Pollakiuria [Recovering/Resolving]

NARRATIVE: CASE EVENT DATE: 20251120
